FAERS Safety Report 20314531 (Version 3)
Quarter: 2023Q1

REPORT INFORMATION
  Report Type: Spontaneous
  Country: CA (occurrence: CA)
  Receive Date: 20220109
  Receipt Date: 20230120
  Transmission Date: 20230418
  Serious: Yes (Death, Hospitalization, Other)
  Sender: FDA-Public Use
  Company Number: CA-SAMSUNG BIOEPIS-SB-2021-30746

PATIENT
  Age: 73 Year
  Sex: Male
  Weight: 124 kg

DRUGS (3)
  1. INFLIXIMAB [Suspect]
     Active Substance: INFLIXIMAB
     Indication: Psoriasis
     Route: 042
  2. METHOTREXATE [Concomitant]
     Active Substance: METHOTREXATE
     Indication: Product used for unknown indication
     Route: 048
  3. METHOTREXATE [Concomitant]
     Active Substance: METHOTREXATE
     Route: 065

REACTIONS (12)
  - Death [Fatal]
  - COVID-19 [Fatal]
  - Chest pain [Fatal]
  - Decreased appetite [Fatal]
  - Dyspnoea [Fatal]
  - Heart rate irregular [Fatal]
  - Osteoarthritis [Fatal]
  - Psoriatic arthropathy [Fatal]
  - Viral infection [Fatal]
  - Weight decreased [Fatal]
  - Intentional product use issue [Fatal]
  - Off label use [Fatal]
